FAERS Safety Report 11292149 (Version 1)
Quarter: 2015Q3

REPORT INFORMATION
  Report Type: Spontaneous
  Country: US (occurrence: None)
  Receive Date: 20150721
  Receipt Date: 20150721
  Transmission Date: 20151125
  Serious: Yes (Hospitalization)
  Sender: FDA-Public Use
  Company Number: None

PATIENT
  Age: 83 Year
  Sex: Male

DRUGS (2)
  1. POTASSIUM CHLORIDE. [Suspect]
     Active Substance: POTASSIUM CHLORIDE
     Indication: HYPOKALAEMIA
     Route: 048
     Dates: end: 20100226
  2. CANDESARTAN [Suspect]
     Active Substance: CANDESARTAN
     Indication: HYPERTENSION
     Route: 048
     Dates: end: 20100226

REACTIONS (6)
  - Acute kidney injury [None]
  - Hypotension [None]
  - Haemodialysis [None]
  - Electrocardiogram PR prolongation [None]
  - Bradycardia [None]
  - Hyperkalaemia [None]

NARRATIVE: CASE EVENT DATE: 20100226
